FAERS Safety Report 5017320-2 (Version None)
Quarter: 2006Q2

REPORT INFORMATION
  Report Type: 
  Country: None (occurrence: None)
  Receive Date: 20060414
  Receipt Date: 20060302
  Transmission Date: 20061013
  Serious: No
  Sender: FDA-Public Use
  Company Number: 2006SP001031

PATIENT
  Age: 64 Year
  Sex: Female
  Weight: 47.6277 kg

DRUGS (5)
  1. LUNESTA [Suspect]
     Indication: INSOMNIA
     Dosage: 2 MG;1X;ORAL
     Route: 048
     Dates: start: 20060301, end: 20060301
  2. AVANDIA [Concomitant]
  3. AMARYL [Concomitant]
  4. PRAVACHOL [Concomitant]
  5. NATURAL AND SEMISYNTHETIC ESTROGENS, PLAIN [Concomitant]

REACTIONS (3)
  - DRUG INEFFECTIVE [None]
  - HEADACHE [None]
  - INSOMNIA [None]
